FAERS Safety Report 24543771 (Version 6)
Quarter: 2025Q4

REPORT INFORMATION
  Report Type: Report from Study
  Country: US (occurrence: US)
  Receive Date: 20241024
  Receipt Date: 20251218
  Transmission Date: 20260117
  Serious: Yes (Other)
  Sender: UCB
  Company Number: US-UCBSA-2024053922

PATIENT
  Age: 35 Year
  Weight: 64 kg

DRUGS (43)
  1. FENFLURAMINE HYDROCHLORIDE [Suspect]
     Active Substance: FENFLURAMINE HYDROCHLORIDE
     Indication: Lennox-Gastaut syndrome
     Dosage: 14.96 MILLIGRAM PER DAY
     Route: 061
  2. FENFLURAMINE HYDROCHLORIDE [Suspect]
     Active Substance: FENFLURAMINE HYDROCHLORIDE
     Dosage: 3.6 MILLILITER, 2X/DAY (BID)
     Route: 061
  3. FENFLURAMINE HYDROCHLORIDE [Suspect]
     Active Substance: FENFLURAMINE HYDROCHLORIDE
     Dosage: 5.9 MILLILITER, 2X/DAY (BID)
     Route: 061
  4. VIMPAT [Suspect]
     Active Substance: LACOSAMIDE
     Indication: Product used for unknown indication
     Dosage: 150 MILLIGRAM, 2X/DAY (BID)
     Route: 061
  5. VALPROIC ACID [Suspect]
     Active Substance: VALPROIC ACID
     Indication: Product used for unknown indication
     Dosage: UNK
  6. ZONISAMIDE [Suspect]
     Active Substance: ZONISAMIDE
     Indication: Product used for unknown indication
     Dosage: UNK, 2X/DAY (BID) (2 CAPSULE IN MORNING AND 4 CAPSULE IN BEDTIME)
     Route: 061
  7. ONFI [Suspect]
     Active Substance: CLOBAZAM
     Indication: Product used for unknown indication
     Dosage: 10 MILLIGRAM, 2X/DAY (BID)
     Route: 061
  8. FYCOMPA [Suspect]
     Active Substance: PERAMPANEL
     Indication: Product used for unknown indication
     Dosage: UNK
  9. EPIDIOLEX [Concomitant]
     Active Substance: CANNABIDIOL
     Indication: Product used for unknown indication
     Dosage: 6.6 MILLILITER, 2X/DAY (BID)
     Route: 061
  10. ARIPIPHAZOLE [Concomitant]
     Indication: Product used for unknown indication
     Dosage: 10 MILLIGRAM, ONCE DAILY (QD)
     Route: 061
  11. ASPIRIN [Concomitant]
     Active Substance: ASPIRIN
     Indication: Product used for unknown indication
     Dosage: 81 MILLIGRAM, ONCE DAILY (QD)
     Route: 061
  12. LIPITOR [Concomitant]
     Active Substance: ATORVASTATIN CALCIUM
     Indication: Blood cholesterol
     Dosage: 20 MILLIGRAM, ONCE DAILY (QD)
     Route: 061
  13. daily-vi [Concomitant]
     Indication: Product used for unknown indication
     Dosage: 1 DOSAGE FORM, ONCE DAILY (QD)
     Route: 061
  14. COLACE [Concomitant]
     Active Substance: DOCUSATE SODIUM
     Indication: Product used for unknown indication
     Dosage: 100 MILLIGRAM, 2X/DAY (BID)
     Route: 061
  15. MENTHOL\ZINC OXIDE [Concomitant]
     Active Substance: MENTHOL\ZINC OXIDE
     Indication: Skin odour abnormal
     Dosage: UNK, ONCE DAILY (QD) APPLY SPARINGLY AFTER SHOWER
  16. MENTHOL\ZINC OXIDE [Concomitant]
     Active Substance: MENTHOL\ZINC OXIDE
     Indication: Prophylaxis
  17. HYOSCYAMINE [Concomitant]
     Active Substance: HYOSCYAMINE
     Indication: Drooling
     Dosage: UNK, ONCE DAILY (QD) (1-2 TABLETS BY MOUTH ONCE DAILY)
     Route: 061
  18. IBANDRONATE SODIUM [Concomitant]
     Active Substance: IBANDRONATE SODIUM
     Indication: Product used for unknown indication
     Dosage: 150 MILLIGRAM, MONTHLY (QM)
     Route: 061
  19. KETOCONAZOLE [Concomitant]
     Active Substance: KETOCONAZOLE
     Dosage: UNK, ONCE DAILY (QD) (WASH BUTTOCKS ONCE DAILY FOR ONE WEEK)
  20. LAMICTAL [Concomitant]
     Active Substance: LAMOTRIGINE
     Indication: Product used for unknown indication
     Dosage: 150 MILLIGRAM, 2X/DAY (BID)
     Route: 061
  21. l.USIPROSTONE [Concomitant]
     Indication: Product used for unknown indication
     Dosage: 24 MICROGRAM, 2X/DAY (BID)
     Route: 061
  22. POLYETHYLENE GLYCOL [Concomitant]
     Active Substance: POLYETHYLENE GLYCOL
     Indication: Product used for unknown indication
     Dosage: 17 GRAM, 2X/DAY (BID)
     Route: 061
  23. RUFINAMIDE [Concomitant]
     Active Substance: RUFINAMIDE
     Indication: Product used for unknown indication
     Dosage: UNK UNK, 2X/DAY (BID) (2 TABLETS AT NOON AND 3 TABLETS AT NIGHT)
     Route: 061
  24. SYSTANE (HYPROMELLOSE 2910 (4000 MPA.S)) [Concomitant]
     Active Substance: HYPROMELLOSE 2910 (4000 MPA.S)
     Indication: Product used for unknown indication
     Dosage: UNK, 2X/DAY (BID) (ONE DROP IN BOTH EYES TWICE DAILY)
  25. FLOMAX [Concomitant]
     Active Substance: TAMSULOSIN HYDROCHLORIDE
     Indication: Product used for unknown indication
     Dosage: 0.4 MILLIGRAM, ONCE DAILY (QD)
     Route: 061
  26. VITAMIN D3 [Concomitant]
     Active Substance: CHOLECALCIFEROL
     Indication: Product used for unknown indication
     Dosage: 25 MICROGRAM, ONCE DAILY (QD)
     Route: 061
  27. TYLENOL [Concomitant]
     Active Substance: ACETAMINOPHEN
     Indication: Pain
     Dosage: UNK (TAKE 2 TABLETS BY MOUTH EVERY 4-6 HOURS AS NEEDED)
     Route: 061
  28. TYLENOL [Concomitant]
     Active Substance: ACETAMINOPHEN
     Indication: Pyrexia
  29. NAYZILAM [Concomitant]
     Active Substance: MIDAZOLAM
     Indication: Seizure
     Dosage: UNK (GIVE 1 SPRAY IN ONE NOSTRIL AS NEEDED FOR SEIZURE }5 MINUTES OR SEIZURE CLUSTER. MAY GIVE 1 ADDITIONAL SPRAY IN OPPOSITE NOSTRIL AFTER 10 MINUTES IF NEEDED. MAX 2 DOSES PER EPISODE 1 EPISODE EVERY THREE DAYS UPTO 5 EPISODES PER MONTH))
  30. ANTACID [Concomitant]
     Active Substance: ALUMINUM HYDROXIDE\CALCIUM CARBONATE\DIMETHICONE\MAGNESIUM HYDROXIDE
     Indication: Product used for unknown indication
     Dosage: 750 MILLIGRAM, 4X/DAY (QID) (AS NEEDED)
     Route: 061
  31. BOUOREAUXS [Concomitant]
     Indication: Product used for unknown indication
     Dosage: UNK, 3X/DAY (TID) (APPLY TO AFFECTED AREA THREE TIMES A DAY AS NEEDED)
  32. calcium anracid [Concomitant]
     Indication: Abdominal discomfort
     Dosage: 750 MILLIGRAM, 4X/DAY (QID) AS NEEDED
     Route: 061
  33. calcium anracid [Concomitant]
     Indication: Dyspepsia
  34. lotrimin [Concomitant]
     Indication: Dermatitis diaper
     Dosage: UNK, ONCE DAILY (QD) APPLY TO BUTTOCKS AS NEEDED
     Route: 048
  35. PREPARATION H HYDROCORTISONE [Concomitant]
     Active Substance: HYDROCORTISONE
     Indication: Rectal haemorrhage
     Dosage: UNK, ONCE DAILY (QD) AS NEEDED
  36. LORAZEPAM [Concomitant]
     Active Substance: LORAZEPAM
     Indication: Insomnia
     Dosage: 1 MILLIGRAM, ONCE DAILY (QD) AS NEEDED
     Route: 061
  37. MILK OF MAGNESIA [Concomitant]
     Active Substance: MAGNESIUM HYDROXIDE
     Indication: Constipation
     Dosage: UNK (TAKE 30 CC BY MOUTH WITH 8 OZ OF WATER EVERY 4-6 HOURS AS NEEDED)
     Route: 061
  38. SABRIL [Concomitant]
     Active Substance: VIGABATRIN
     Indication: Product used for unknown indication
     Dosage: UNK
  39. PHENYTOIN [Concomitant]
     Active Substance: PHENYTOIN
     Indication: Product used for unknown indication
     Dosage: UNK
  40. KLONOPIN [Concomitant]
     Active Substance: CLONAZEPAM
     Indication: Seizure
     Dosage: 1 MILLIGRAM, ONCE DAILY (QD) AS NEEDED
  41. KLONOPIN [Concomitant]
     Active Substance: CLONAZEPAM
     Indication: Aura
  42. TOPIRAMATE [Concomitant]
     Active Substance: TOPIRAMATE
     Indication: Product used for unknown indication
     Dosage: UNK
  43. DEPO-PROVERA [Concomitant]
     Active Substance: MEDROXYPROGESTERONE ACETATE
     Indication: Product used for unknown indication
     Dosage: UNK, EV 3 MONTHS 1 DOSE EVERY 3 MONTHS

REACTIONS (8)
  - Tricuspid valve incompetence [Recovered/Resolved]
  - Seizure cluster [Not Recovered/Not Resolved]
  - Petit mal epilepsy [Not Recovered/Not Resolved]
  - Mitral valve incompetence [Not Recovered/Not Resolved]
  - Seizure [Unknown]
  - Liver disorder [Unknown]
  - Malaise [Unknown]
  - Aggression [Unknown]
